FAERS Safety Report 18852907 (Version 7)
Quarter: 2023Q1

REPORT INFORMATION
  Report Type: Report from Study
  Country: IN (occurrence: IN)
  Receive Date: 20210205
  Receipt Date: 20230116
  Transmission Date: 20230418
  Serious: Yes (Other)
  Sender: FDA-Public Use
  Company Number: IN-NOVARTISPH-NVSC2021IN023598

PATIENT
  Age: 68 Year
  Sex: Male

DRUGS (21)
  1. SECUKINUMAB [Suspect]
     Active Substance: SECUKINUMAB
     Indication: Ankylosing spondylitis
     Dosage: UNK UNK, QW
     Route: 058
  2. SECUKINUMAB [Suspect]
     Active Substance: SECUKINUMAB
     Dosage: 150 MG, QW
     Route: 058
     Dates: start: 20201223
  3. SECUKINUMAB [Suspect]
     Active Substance: SECUKINUMAB
     Dosage: 150 MG, QMO
     Route: 058
  4. SECUKINUMAB [Suspect]
     Active Substance: SECUKINUMAB
     Dosage: 150 MG
     Route: 065
     Dates: start: 20211129
  5. SECUKINUMAB [Suspect]
     Active Substance: SECUKINUMAB
     Dosage: 150 MG, Q3MO
     Route: 065
     Dates: start: 20220315
  6. SECUKINUMAB [Suspect]
     Active Substance: SECUKINUMAB
     Dosage: 150 MG
     Route: 065
     Dates: start: 20220321
  7. SECUKINUMAB [Suspect]
     Active Substance: SECUKINUMAB
     Dosage: 150 MG, QMO
     Route: 058
     Dates: start: 20220510
  8. SECUKINUMAB [Suspect]
     Active Substance: SECUKINUMAB
     Dosage: UNK
     Route: 065
     Dates: start: 202206
  9. SECUKINUMAB [Suspect]
     Active Substance: SECUKINUMAB
     Dosage: 150 MG, QMO
     Route: 058
     Dates: start: 20221115
  10. SECUKINUMAB [Suspect]
     Active Substance: SECUKINUMAB
     Dosage: 150 MG, QMO
     Route: 058
     Dates: start: 20221118
  11. SECUKINUMAB [Suspect]
     Active Substance: SECUKINUMAB
     Dosage: 150 MG, QMO
     Route: 058
     Dates: start: 20221212
  12. TELPRES [Concomitant]
     Indication: Hypertension
     Dosage: 0.5 DF, QD (50 MG) (AFTER HAVING BREAKFAST))
     Route: 065
  13. METHOTREXATE SODIUM [Concomitant]
     Active Substance: METHOTREXATE SODIUM
     Indication: Hypertension
     Dosage: UNK
     Route: 065
  14. METHOTREXATE SODIUM [Concomitant]
     Active Substance: METHOTREXATE SODIUM
     Dosage: 1 DOSAGE FORM, QW
     Route: 048
     Dates: start: 20220510
  15. METHOTREXATE SODIUM [Concomitant]
     Active Substance: METHOTREXATE SODIUM
     Dosage: 1 DOSAGE FORM, QW (WED)
     Route: 065
  16. NAPROSYN [Concomitant]
     Active Substance: NAPROXEN
     Indication: Product used for unknown indication
     Dosage: 1 DOSAGE FORM, BID (MORNING AND EVENING AFTER MEAL)
     Route: 048
     Dates: start: 20220510
  17. NAPROSYN [Concomitant]
     Active Substance: NAPROXEN
     Dosage: 25 MG, BID (FOR 20 DAYS)
     Route: 065
  18. SOMPRAZ [Concomitant]
     Indication: Product used for unknown indication
     Dosage: 1 DOSAGE FORM (BEFORE BREAKFAST)
     Route: 065
     Dates: start: 20220510
  19. SOMPRAZ [Concomitant]
     Dosage: 1 DOSAGE FORM, QD (FOR 20 DAYS)
     Route: 065
  20. FOLVITE [Concomitant]
     Active Substance: FOLIC ACID
     Indication: Product used for unknown indication
     Dosage: 1 DOSAGE FORM, QD (DAILY MORNING EXCEPT ON THE DAY OF FOLITREX)
     Route: 048
     Dates: start: 20220510
  21. FOLVITE [Concomitant]
     Active Substance: FOLIC ACID
     Dosage: 2 DOSAGE FORM, BIW (SAT AND SUN)
     Route: 065

REACTIONS (6)
  - Blood pressure increased [Unknown]
  - Heart rate increased [Unknown]
  - Swelling [Unknown]
  - Joint effusion [Unknown]
  - Arthralgia [Unknown]
  - Off label use [Unknown]

NARRATIVE: CASE EVENT DATE: 20220315
